FAERS Safety Report 9748783 (Version 1)
Quarter: 2013Q4

REPORT INFORMATION
  Report Type: Spontaneous
  Country: FR (occurrence: None)
  Receive Date: 20131209
  Receipt Date: 20131209
  Transmission Date: 20140711
  Serious: Yes (Hospitalization)
  Sender: FDA-Public Use
  Company Number: IBUP20130016

PATIENT
  Age: 24 Year
  Sex: Female

DRUGS (2)
  1. IBUPROFEN [Suspect]
     Indication: CHEST PAIN
     Route: 048
  2. IBUPROFEN [Suspect]
     Indication: PYREXIA
     Route: 048

REACTIONS (6)
  - Lung abscess [None]
  - Pneumonia pneumococcal [None]
  - Acute respiratory failure [None]
  - Self-medication [None]
  - General physical health deterioration [None]
  - Bronchiectasis [None]
